FAERS Safety Report 5384811-4 (Version None)
Quarter: 2007Q3

REPORT INFORMATION
  Report Type: 
  Country: None (occurrence: None)
  Receive Date: 20070711
  Receipt Date: 20070709
  Transmission Date: 20080115
  Serious: Yes (Hospitalization)
  Sender: FDA-Public Use
  Company Number: US-PFIZER INC-2007055661

PATIENT
  Sex: Male
  Weight: 102.1 kg

DRUGS (1)
  1. XANAX [Suspect]
     Indication: ANXIETY

REACTIONS (1)
  - ACCIDENT [None]
